FAERS Safety Report 5937974-3 (Version None)
Quarter: 2008Q4

REPORT INFORMATION
  Report Type: 
  Country: None (occurrence: None)
  Receive Date: 20081031
  Receipt Date: 20081020
  Transmission Date: 20090506
  Serious: Yes (Hospitalization, Other)
  Sender: FDA-Public Use
  Company Number: US-PFIZER INC-2008068952

PATIENT
  Sex: Female
  Weight: 47.7 kg

DRUGS (6)
  1. LYRICA [Suspect]
     Indication: FIBROMYALGIA
     Route: 048
     Dates: start: 20080804
  2. NEXIUM [Concomitant]
  3. ALBUTEROL [Concomitant]
  4. PREDNISONE [Concomitant]
  5. TRAMADOL HCL [Concomitant]
  6. FUROSEMIDE [Concomitant]

REACTIONS (12)
  - ABDOMINAL PAIN UPPER [None]
  - BACK PAIN [None]
  - BODY HEIGHT DECREASED [None]
  - CHEST DISCOMFORT [None]
  - DIARRHOEA [None]
  - DISORIENTATION [None]
  - FATIGUE [None]
  - GASTROENTERITIS VIRAL [None]
  - NAUSEA [None]
  - VOMITING [None]
  - WEIGHT DECREASED [None]
  - WHITE BLOOD CELL COUNT INCREASED [None]
